FAERS Safety Report 7739702-8 (Version None)
Quarter: 2011Q3

REPORT INFORMATION
  Report Type: 
  Country: None (occurrence: None)
  Receive Date: 20110909
  Receipt Date: 20110829
  Transmission Date: 20111222
  Serious: Yes (Other)
  Sender: FDA-Public Use
  Company Number: US-JNJFOC-20110901361

PATIENT
  Age: 33 Year
  Sex: Male

DRUGS (2)
  1. CHEMOTHERAPY [Suspect]
     Indication: NEOPLASM MALIGNANT
     Route: 065
  2. DOXORUBICIN HCL [Suspect]
     Indication: NEOPLASM MALIGNANT
     Route: 042

REACTIONS (2)
  - DRUG DOSE OMISSION [None]
  - CONDITION AGGRAVATED [None]
